FAERS Safety Report 20715165 (Version 1)
Quarter: 2022Q2

REPORT INFORMATION
  Report Type: Spontaneous
  Country: NL (occurrence: None)
  Receive Date: 20220415
  Receipt Date: 20220415
  Transmission Date: 20220721
  Serious: Yes (Other)
  Sender: FDA-Public Use
  Company Number: 2022A144232

PATIENT
  Sex: Female

DRUGS (4)
  1. ROSUVASTATIN [Suspect]
     Active Substance: ROSUVASTATIN
     Indication: Coronary artery disease
     Dosage: 1D1T
     Route: 048
     Dates: start: 20210928, end: 20220201
  2. ATORVASTATIN\EZETIMIBE\FENOFIBRATE [Suspect]
     Active Substance: ATORVASTATIN\EZETIMIBE\FENOFIBRATE
     Indication: Coronary artery disease
     Dosage: 1D1T
     Route: 065
     Dates: start: 20210928, end: 20220201
  3. PANTOPRAZOLE SODIUM [Concomitant]
     Active Substance: PANTOPRAZOLE SODIUM
     Dosage: GASTRO-RESISTANT TABLET, 40 MG (MILLIGRAMS)
     Route: 065
  4. ASPIRIN [Concomitant]
     Active Substance: ASPIRIN
     Dosage: TABLET, 80 MG (MILLIGRAM)

REACTIONS (2)
  - Fatigue [Recovered/Resolved]
  - Dyspnoea [Recovered/Resolved]
